FAERS Safety Report 10404165 (Version 1)
Quarter: 2014Q1

REPORT INFORMATION
  Report Type: Spontaneous
  Country: US (occurrence: None)
  Receive Date: 20130916
  Receipt Date: 20130916
  Transmission Date: 20141002
  Serious: Yes (Other)
  Sender: FDA-Public Use
  Company Number: JPI-P-025212

PATIENT
  Age: 56 Year
  Sex: Female

DRUGS (17)
  1. XYREM (500 MILLIGRAM/MILLILITERS, SOLUTION) (SODIUM OXYBATE) [Suspect]
     Indication: NARCOLEPSY
     Dosage: 4.5 GM (2.25 GM, 2 IN 1 D), ORAL
     Route: 048
     Dates: start: 20070703
  2. DULOXETINE HYDROCHLORIDE [Concomitant]
  3. LAMOTRIGINE [Concomitant]
  4. ALBUTEROL [Concomitant]
  5. CYCLOBENZAPRINE [Concomitant]
  6. LANSOPRAZOLE [Concomitant]
  7. LEVOTHYROXINE [Concomitant]
  8. ISONIAZID [Concomitant]
  9. PYRIDOXINE [Concomitant]
  10. METHOTREXATE [Concomitant]
  11. GOLIMUMAB [Concomitant]
  12. PREDNISONE [Concomitant]
  13. FOLIC ACID [Concomitant]
  14. CHOLECALCIFEROL [Concomitant]
  15. OMEGA [Concomitant]
  16. SILYBUM MARIANUM [Concomitant]
  17. CYANOCOBALAMIN [Concomitant]

REACTIONS (3)
  - Balance disorder [None]
  - Fall [None]
  - Ankle fracture [None]
